FAERS Safety Report 14973699 (Version 2)
Quarter: 2018Q2

REPORT INFORMATION
  Report Type: Report from Study
  Country: BR (occurrence: BR)
  Receive Date: 20180605
  Receipt Date: 20180607
  Transmission Date: 20180711
  Serious: No
  Sender: FDA-Public Use
  Company Number: BR-EMD SERONO-E2B_90045298

PATIENT
  Age: 19 Year
  Sex: Male

DRUGS (1)
  1. REBIF [Suspect]
     Active Substance: INTERFERON BETA-1A
     Indication: MULTIPLE SCLEROSIS
     Route: 058
     Dates: start: 20180519

REACTIONS (5)
  - Headache [Unknown]
  - Back pain [Unknown]
  - Muscular weakness [Unknown]
  - Pyrexia [Unknown]
  - Overdose [Unknown]

NARRATIVE: CASE EVENT DATE: 20180519
